FAERS Safety Report 12205488 (Version 2)
Quarter: 2016Q1

REPORT INFORMATION
  Report Type: Spontaneous
  Country: US (occurrence: US)
  Receive Date: 20160323
  Receipt Date: 20160331
  Transmission Date: 20160526
  Serious: No
  Sender: FDA-Public Use
  Company Number: US-GILEAD-2016-0204878

PATIENT
  Sex: Male

DRUGS (4)
  1. INTERFERON [Concomitant]
     Active Substance: INTERFERON
  2. RIBAVIRIN. [Concomitant]
     Active Substance: RIBAVIRIN
  3. HARVONI [Suspect]
     Active Substance: LEDIPASVIR\SOFOSBUVIR
     Indication: PRODUCT USED FOR UNKNOWN INDICATION
     Route: 065
  4. SILYBUM MARIANUM EXTRACT [Concomitant]

REACTIONS (3)
  - Headache [Unknown]
  - Hepatic enzyme abnormal [Unknown]
  - Fatigue [Unknown]
